FAERS Safety Report 15541213 (Version 1)
Quarter: 2018Q4

REPORT INFORMATION
  Report Type: Spontaneous
  Country: DE (occurrence: DE)
  Receive Date: 20181023
  Receipt Date: 20181023
  Transmission Date: 20190205
  Serious: Yes (Other)
  Sender: FDA-Public Use
  Company Number: DE-IPSEN BIOPHARMACEUTICALS, INC.-2018-16120

PATIENT
  Age: 78 Year
  Sex: Male

DRUGS (10)
  1. PANTOPRAZOL NYC [Concomitant]
     Active Substance: PANTOPRAZOLE SODIUM
  2. ALOXI [Concomitant]
     Active Substance: PALONOSETRON HYDROCHLORIDE
  3. L-THYROX HEXAL [Concomitant]
     Active Substance: LEVOTHYROXINE SODIUM
  4. PREDNISOLONE. [Concomitant]
     Active Substance: PREDNISOLONE
  5. CABOMETYX [Suspect]
     Active Substance: CABOZANTINIB S-MALATE
     Indication: PRODUCT USED FOR UNKNOWN INDICATION
     Dosage: 60 MG, UNK
     Route: 048
     Dates: start: 20171211, end: 20180322
  6. LERCANIDIPINE [Concomitant]
     Active Substance: LERCANIDIPINE
  7. ENALAPRIL [Concomitant]
     Active Substance: ENALAPRIL
  8. OXYCODONE [Concomitant]
     Active Substance: OXYCODONE
  9. ATORVASTATIN [Concomitant]
     Active Substance: ATORVASTATIN
  10. NOVAMINSULFON [Concomitant]
     Active Substance: METAMIZOLE

REACTIONS (2)
  - Deep vein thrombosis [Unknown]
  - Pulmonary embolism [Unknown]
